FAERS Safety Report 6387397-0 (Version None)
Quarter: 2009Q3

REPORT INFORMATION
  Report Type: 
  Country: None (occurrence: None)
  Receive Date: 20090930
  Receipt Date: 20090916
  Transmission Date: 20100115
  Serious: Yes (Other)
  Sender: FDA-Public Use
  Company Number: 2009AL004572

PATIENT
  Sex: Male

DRUGS (4)
  1. DIGOXIN [Suspect]
     Dosage: PO
     Route: 048
     Dates: start: 20060601, end: 20080501
  2. TAUROCYAMIN [Concomitant]
  3. DEMADEX [Concomitant]
  4. ZAROXOLYN [Concomitant]

REACTIONS (5)
  - BRAIN NATRIURETIC PEPTIDE INCREASED [None]
  - ECONOMIC PROBLEM [None]
  - GOUT [None]
  - MULTIPLE INJURIES [None]
  - SUBDURAL HAEMATOMA [None]
